FAERS Safety Report 5593587-7 (Version None)
Quarter: 2008Q1

REPORT INFORMATION
  Report Type: 
  Country: None (occurrence: None)
  Receive Date: 20080116
  Receipt Date: 20071226
  Transmission Date: 20080703
  Serious: Yes (Other)
  Sender: FDA-Public Use
  Company Number: FR-JNJFOC-20080103444

PATIENT
  Sex: Male

DRUGS (1)
  1. IXPRIM [Suspect]
     Indication: PAIN
     Route: 048

REACTIONS (2)
  - INFERTILITY [None]
  - SPERM ANALYSIS ABNORMAL [None]
